FAERS Safety Report 7825234 (Version 4)
Quarter: 2014Q1

REPORT INFORMATION
  Report Type: Spontaneous
  Country: US (occurrence: US)
  Receive Date: 20110224
  Receipt Date: 20140106
  Transmission Date: 20141002
  Serious: Yes (Hospitalization, Other)
  Sender: FDA-Public Use
  Company Number: US-ROCHE-734089

PATIENT
  Age: 48 Year
  Sex: Female
  Weight: 68 kg

DRUGS (3)
  1. ACCUTANE [Suspect]
     Indication: ACNE
     Dosage: THERAPY FOR SIX MONTHS
     Route: 065
  2. ACCUTANE [Suspect]
     Route: 065
     Dates: start: 20020101, end: 20020101
  3. ACCUTANE [Suspect]
     Route: 065
     Dates: start: 20041130, end: 20050826

REACTIONS (7)
  - Crohn^s disease [Unknown]
  - Depression [Unknown]
  - Inflammatory bowel disease [Unknown]
  - Large intestine polyp [Unknown]
  - Gastrointestinal injury [Unknown]
  - Irritable bowel syndrome [Unknown]
  - Rash [Unknown]
